FAERS Safety Report 15153976 (Version 1)
Quarter: 2018Q3

REPORT INFORMATION
  Report Type: Spontaneous
  Country: US (occurrence: US)
  Receive Date: 20180717
  Receipt Date: 20180717
  Transmission Date: 20181010
  Serious: Yes (Hospitalization)
  Sender: FDA-Public Use
  Company Number: US-APOTEX-2018AP017398

PATIENT
  Age: 75 Year
  Sex: Female

DRUGS (6)
  1. TREMELIMUMAB. [Concomitant]
     Active Substance: TREMELIMUMAB
     Indication: ENDOMETRIAL CANCER METASTATIC
     Dosage: 75 MG, UNK
     Route: 065
  2. ENALAPRIL [Suspect]
     Active Substance: ENALAPRIL
     Indication: CARDIAC FAILURE
     Dosage: UNK
     Route: 065
  3. DURVALUMAB. [Concomitant]
     Active Substance: DURVALUMAB
     Indication: ENDOMETRIAL CANCER METASTATIC
     Dosage: 1500 MG, UNK
     Route: 065
  4. MYCOPHENOLATE MOFETIL. [Concomitant]
     Active Substance: MYCOPHENOLATE MOFETIL
     Indication: MYOCARDITIS
     Dosage: 1000 MG, BID
     Route: 048
  5. PREDNISONE. [Concomitant]
     Active Substance: PREDNISONE
     Indication: MYOCARDITIS
  6. PREDNISONE. [Concomitant]
     Active Substance: PREDNISONE
     Indication: CORONARY ARTERY DISEASE
     Dosage: 1.5 MG/KG, UNK
     Route: 065

REACTIONS (1)
  - Hypotension [Unknown]
